FAERS Safety Report 21389628 (Version 1)
Quarter: 2022Q3

REPORT INFORMATION
  Report Type: Spontaneous
  Country: US (occurrence: US)
  Receive Date: 20220929
  Receipt Date: 20220929
  Transmission Date: 20221027
  Serious: Yes (Hospitalization, Other)
  Sender: FDA-Public Use
  Company Number: US-AMGEN-USASP2022166503

PATIENT
  Sex: Male

DRUGS (1)
  1. OTEZLA [Suspect]
     Active Substance: APREMILAST
     Indication: Psoriatic arthropathy
     Dosage: UNK (10, 20, 30, 28DAY TITR PACK, AS DIRECTED)
     Route: 048

REACTIONS (3)
  - Pneumonia [Unknown]
  - Pain [Unknown]
  - Product administration interrupted [Unknown]
